FAERS Safety Report 6824194-3 (Version None)
Quarter: 2010Q3

REPORT INFORMATION
  Report Type: 
  Country: None (occurrence: None)
  Receive Date: 20100708
  Receipt Date: 20061010
  Transmission Date: 20110219
  Serious: No
  Sender: FDA-Public Use
  Company Number: US-PFIZER INC-2006125577

PATIENT
  Sex: Female
  Weight: 47.63 kg

DRUGS (2)
  1. CHANTIX [Suspect]
     Indication: EX-TOBACCO USER
     Route: 048
     Dates: start: 20061001
  2. INFLUENZA VACCINE [Suspect]

REACTIONS (3)
  - LACRIMATION INCREASED [None]
  - MEMORY IMPAIRMENT [None]
  - SLEEP DISORDER [None]
